FAERS Safety Report 6296312-X (Version None)
Quarter: 2009Q3

REPORT INFORMATION
  Report Type: 
  Country: None (occurrence: None)
  Receive Date: 20090804
  Receipt Date: 20090724
  Transmission Date: 20100115
  Serious: Yes (Hospitalization, Other)
  Sender: FDA-Public Use
  Company Number: US-TYCO HEALTHCARE/MALLINCKRODT-T200901422

PATIENT
  Age: 50 Year
  Sex: Female
  Weight: 54.422 kg

DRUGS (8)
  1. PAMELOR [Suspect]
     Dosage: 150 MG, QD, AT BEDTIME
  2. PAMELOR [Suspect]
     Dosage: DOSE DECREASED TO 100 MG AT BEDTIME 2 DAYS BEFORE ADMISSION
  3. TELITHROMYCIN [Suspect]
     Dosage: 400 MG, BID FOR FIVE DAYS
  4. VALSARTAN/HYDROCHLOORTHIAZIDE [Concomitant]
     Dosage: 40/6.25 MG DAILY
  5. WARFARIN SODIUM [Concomitant]
     Dosage: 5 MG, QD
  6. ESOMEPRAZOLE MAGNESIUM [Concomitant]
     Dosage: 40 MG, QD
  7. ALPRAZOLAM [Concomitant]
     Dosage: 1 MG, QD AT BEDTIME
  8. LORAZEPAM [Concomitant]
     Dosage: 1 MG, AT BEDTIME AS NEEDED

REACTIONS (2)
  - CARDIOTOXICITY [None]
  - DRUG INTERACTION [None]
